FAERS Safety Report 4653445-9 (Version None)
Quarter: 2005Q2

REPORT INFORMATION
  Report Type: 
  Country: None (occurrence: None)
  Receive Date: 20050505
  Receipt Date: 20041026
  Transmission Date: 20051028
  Serious: Yes (Hospitalization)
  Sender: FDA-Public Use
  Company Number: 101

PATIENT
  Age: 73 Year
  Sex: Male

DRUGS (9)
  1. MELPHALAN [Suspect]
     Indication: MULTIPLE MYELOMA
     Route: 042
     Dates: start: 20040902
  2. THALIDOMIDE [Suspect]
     Route: 048
     Dates: start: 20040922, end: 20040924
  3. DEXAMETHASONE [Suspect]
     Dates: start: 20040902, end: 20040924
  4. BORTEZOMIB [Concomitant]
  5. DEXAMETHASONE [Concomitant]
  6. CISPLATIN [Concomitant]
  7. ADRIAMYCIN [Concomitant]
  8. CYCLOPHOSPHAMIDE [Concomitant]
  9. ETOPOSIDE [Concomitant]

REACTIONS (6)
  - ANXIETY [None]
  - COLITIS [None]
  - DIARRHOEA [None]
  - GASTROENTERITIS VIRAL [None]
  - NAUSEA [None]
  - PYREXIA [None]
